FAERS Safety Report 9247615 (Version 1)
Quarter: 2013Q2

REPORT INFORMATION
  Report Type: Spontaneous
  Country: US (occurrence: US)
  Receive Date: 20130423
  Receipt Date: 20130423
  Transmission Date: 20140414
  Serious: Yes (Other)
  Sender: FDA-Public Use
  Company Number: US-PFIZER INC-2013124203

PATIENT
  Age: 62 Year
  Sex: Female
  Weight: 59.41 kg

DRUGS (5)
  1. CELEBREX [Suspect]
     Indication: ARTHRALGIA
     Dosage: 1X/DAY
     Route: 048
     Dates: start: 2004, end: 2004
  2. VANCOMYCIN HCL [Suspect]
     Dosage: UNK
     Dates: start: 2010, end: 2010
  3. MORPHINE [Concomitant]
     Indication: PAIN
  4. BENADRYL [Concomitant]
     Indication: SLEEP DISORDER
  5. KLONOPIN [Concomitant]
     Indication: SLEEP DISORDER

REACTIONS (2)
  - Ehlers-Danlos syndrome [Unknown]
  - Sleep disorder [Not Recovered/Not Resolved]
